FAERS Safety Report 8611736-0 (Version None)
Quarter: 2012Q3

REPORT INFORMATION
  Report Type: 
  Country: None (occurrence: None)
  Receive Date: 20120822
  Receipt Date: 20120815
  Transmission Date: 20120928
  Serious: Yes (Hospitalization)
  Sender: FDA-Public Use
  Company Number: US-GENZYME-CAMP-1002281

PATIENT
  Sex: Female
  Weight: 60.59 kg

DRUGS (3)
  1. REBIF [Concomitant]
     Indication: MULTIPLE SCLEROSIS
     Dosage: 44 MCG, 3X/W
     Route: 058
     Dates: start: 20090804, end: 20110820
  2. ALEMTUZUMAB [Suspect]
     Indication: MULTIPLE SCLEROSIS
     Dosage: 12 MG, QD
     Route: 042
     Dates: start: 20111205, end: 20111209
  3. METHYLPREDNISOLONE [Concomitant]
     Indication: MULTIPLE SCLEROSIS
     Dosage: 1.0 G, QD
     Route: 042
     Dates: start: 20111205, end: 20111207

REACTIONS (1)
  - COLITIS [None]
